FAERS Safety Report 4705284-8 (Version None)
Quarter: 2005Q3

REPORT INFORMATION
  Report Type: 
  Country: None (occurrence: None)
  Receive Date: 20050701
  Receipt Date: 20050617
  Transmission Date: 20060218
  Serious: Yes (Hospitalization)
  Sender: FDA-Public Use
  Company Number: FR-BRISTOL-MYERS SQUIBB COMPANY-13022199

PATIENT
  Age: 17 Year
  Sex: Female

DRUGS (1)
  1. HOLOXAN [Suspect]
     Indication: EWING'S SARCOMA
     Route: 042
     Dates: start: 20050531, end: 20050602

REACTIONS (3)
  - COORDINATION ABNORMAL [None]
  - MYOCLONUS [None]
  - SOMNOLENCE [None]
